FAERS Safety Report 4575943-9 (Version None)
Quarter: 2005Q1

REPORT INFORMATION
  Report Type: 
  Country: None (occurrence: None)
  Receive Date: 20050209
  Receipt Date: 20050202
  Transmission Date: 20050727
  Serious: Yes (Hospitalization)
  Sender: FDA-Public Use
  Company Number: US-JNJFOC-20050201482

PATIENT
  Sex: Female
  Weight: 52.62 kg

DRUGS (3)
  1. DURAGESIC [Suspect]
     Route: 062
  2. DURAGESIC [Suspect]
     Route: 062
  3. OXYCODONE HCL [Concomitant]
     Indication: PAIN
     Route: 049

REACTIONS (7)
  - ASCITES [None]
  - CONDITION AGGRAVATED [None]
  - GALLBLADDER DISORDER [None]
  - NERVE INJURY [None]
  - PLATELET COUNT DECREASED [None]
  - URINARY TRACT INFECTION [None]
  - WEIGHT INCREASED [None]
